FAERS Safety Report 9846285 (Version 1)
Quarter: 2013Q4

REPORT INFORMATION
  Report Type: Spontaneous
  Country: US (occurrence: None)
  Receive Date: 20131223
  Receipt Date: 20131223
  Transmission Date: 20140711
  Serious: No
  Sender: FDA-Public Use
  Company Number: CABO-13003269

PATIENT
  Age: 41 Year
  Sex: Male

DRUGS (4)
  1. COMETRIQ (CARBOZANTINIB) CAPSULE [Suspect]
     Indication: THYROID CANCER
     Route: 048
     Dates: start: 20130831, end: 20130911
  2. MORPHINE (MORPHINE) [Concomitant]
  3. LORAZEPAM (LORAZEPAM) [Concomitant]
  4. THYROID (THYROID) [Concomitant]

REACTIONS (6)
  - Pruritus [None]
  - Dry skin [None]
  - Diarrhoea [None]
  - Headache [None]
  - Glossodynia [None]
  - Nausea [None]
